FAERS Safety Report 9720501 (Version 3)
Quarter: 2014Q2

REPORT INFORMATION
  Report Type: Report from Study
  Country: FR (occurrence: FR)
  Receive Date: 20131129
  Receipt Date: 20140522
  Transmission Date: 20141212
  Serious: Yes (Life-Threatening, Hospitalization, Disabling, Other)
  Sender: FDA-Public Use
  Company Number: FR-JNJFOC-20131116412

PATIENT
  Age: 65 Year
  Sex: Male
  Weight: 95 kg

DRUGS (16)
  1. XARELTO [Suspect]
     Indication: THROMBOSIS PROPHYLAXIS
     Route: 048
     Dates: start: 20131021
  2. XARELTO [Suspect]
     Indication: THROMBOSIS PROPHYLAXIS
     Route: 048
     Dates: start: 20131003, end: 20131015
  3. XARELTO [Suspect]
     Indication: DEEP VEIN THROMBOSIS
     Route: 048
     Dates: start: 20131003, end: 20131015
  4. XARELTO [Suspect]
     Indication: DEEP VEIN THROMBOSIS
     Route: 048
     Dates: start: 20131021
  5. MODOPAR [Concomitant]
     Route: 065
     Dates: start: 20090513
  6. MESTINON [Concomitant]
     Dosage: TOTAL DAILY DOSE 4 CP
     Route: 065
     Dates: start: 20130726
  7. SPAGULAX [Concomitant]
     Indication: CONSTIPATION PROPHYLAXIS
     Dosage: 3 (DOSE NOT SPECIFIED)
     Route: 065
  8. AVODART [Concomitant]
     Indication: BENIGN PROSTATIC HYPERPLASIA
     Route: 065
  9. BROMAZEPAM [Concomitant]
     Indication: PROPHYLAXIS
     Route: 065
  10. DOLIPRANE [Concomitant]
     Route: 065
  11. SIFROL [Concomitant]
     Route: 065
     Dates: start: 20060626
  12. FORLAX [Concomitant]
     Indication: CONSTIPATION PROPHYLAXIS
     Dosage: 2 SACHETS
     Route: 065
  13. HEPARIN [Concomitant]
     Route: 065
  14. LASILIX [Concomitant]
     Indication: OEDEMA PERIPHERAL
     Route: 065
     Dates: start: 20131013, end: 201311
  15. LASILIX [Concomitant]
     Indication: OEDEMA PERIPHERAL
     Route: 065
     Dates: start: 20131015, end: 20131015
  16. ENOXAPARIN [Concomitant]
     Indication: THROMBOSIS PROPHYLAXIS
     Route: 065
     Dates: start: 201311

REACTIONS (2)
  - Pericardial haemorrhage [Recovered/Resolved]
  - Pleural effusion [Recovered/Resolved]
